FAERS Safety Report 18246699 (Version 1)
Quarter: 2020Q3

REPORT INFORMATION
  Report Type: Spontaneous
  Country: US (occurrence: US)
  Receive Date: 20200909
  Receipt Date: 20200909
  Transmission Date: 20201103
  Serious: Yes (Other)
  Sender: FDA-Public Use
  Company Number: None

PATIENT
  Age: 82 Year
  Sex: Male
  Weight: 83.01 kg

DRUGS (2)
  1. ERLEADA [Suspect]
     Active Substance: APALUTAMIDE
  2. ERLEADA [Concomitant]
     Active Substance: APALUTAMIDE
     Dates: start: 20200428, end: 20200908

REACTIONS (1)
  - Rash [None]

NARRATIVE: CASE EVENT DATE: 20200901
